FAERS Safety Report 4932791-5 (Version None)
Quarter: 2006Q1

REPORT INFORMATION
  Report Type: 
  Country: None (occurrence: None)
  Receive Date: 20060301
  Receipt Date: 20060301
  Transmission Date: 20060701
  Serious: Yes (Other)
  Sender: FDA-Public Use
  Company Number: None

PATIENT
  Age: 55 Year
  Sex: Male
  Weight: 120.2032 kg

DRUGS (10)
  1. BYETTA [Suspect]
     Indication: DIABETES MELLITUS NON-INSULIN-DEPENDENT
     Dosage: 5 MCG SQ BID
     Dates: start: 20060206, end: 20060210
  2. STARLIX [Concomitant]
  3. GLUCOVANCE [Concomitant]
  4. LANTUS [Concomitant]
  5. ZOCOR [Concomitant]
  6. TRIAMTERENE AND HYDROCHLOROTHIAZIDE [Concomitant]
  7. NESORIL [Concomitant]
  8. ASPIRIN [Concomitant]
  9. SUGAR FREE TUMS [Concomitant]
  10. EXTRA STRENGTH TYLENOL [Concomitant]

REACTIONS (2)
  - INSOMNIA [None]
  - MIDDLE INSOMNIA [None]
